FAERS Safety Report 5246786-8 (Version None)
Quarter: 2007Q1

REPORT INFORMATION
  Report Type: 
  Country: None (occurrence: None)
  Receive Date: 20070226
  Receipt Date: 20070215
  Transmission Date: 20070707
  Serious: Yes (Other)
  Sender: FDA-Public Use
  Company Number: HQWYE948116FEB07

PATIENT
  Sex: Female
  Weight: 101.7 kg

DRUGS (3)
  1. EFFEXOR XR [Suspect]
     Indication: BIPOLAR DISORDER
     Dosage: ^DIFFERENT STRENGTHS VARYING FROM 300 MG TO 37.5 MG^
     Route: 048
  2. EFFEXOR XR [Suspect]
     Route: 048
  3. SYNTHROID [Concomitant]
     Indication: HYPOTHYROIDISM
     Dosage: DOSE AND FREQUENCY UNSPECIFIED

REACTIONS (1)
  - IDIOPATHIC THROMBOCYTOPENIC PURPURA [None]
